FAERS Safety Report 7301108-3 (Version None)
Quarter: 2011Q1

REPORT INFORMATION
  Report Type: 
  Country: None (occurrence: None)
  Receive Date: 20110218
  Receipt Date: 20110207
  Transmission Date: 20110831
  Serious: Yes (Hospitalization)
  Sender: FDA-Public Use
  Company Number: JP-BRISTOL-MYERS SQUIBB COMPANY-15554660

PATIENT
  Age: 35 Year
  Sex: Male

DRUGS (9)
  1. REYATAZ [Suspect]
     Indication: HIV INFECTION
     Route: 048
     Dates: start: 20040409
  2. LOPEMIN [Concomitant]
     Indication: DIARRHOEA
     Route: 048
     Dates: start: 20041015
  3. GASTER [Concomitant]
     Indication: DIARRHOEA
     Dates: start: 20041015
  4. EPIVIR [Suspect]
     Indication: HIV INFECTION
     Dosage: TABS.150MG:01APR04-08APR4 300MG/DY:09APR04-ONG
     Route: 048
     Dates: start: 20040409
  5. ZIAGEN [Suspect]
     Indication: HIV INFECTION
     Dosage: TABS
     Route: 048
     Dates: start: 20040409
  6. VALPROATE SODIUM [Concomitant]
     Indication: DEPRESSION
     Dosage: TABS:DEPAKENE-R 08APR04-31MAR08 200MG/DY:01APR06-29MAY08 400MG/DY:30MAY08-ONG
     Route: 048
     Dates: start: 20040408
  7. BENZALIN [Concomitant]
     Indication: INSOMNIA
     Dosage: 27APR04-09JUN05 10MG/DY:10JUN05-07JUL05 15MG/DY:08JUL05-ONG
     Route: 048
     Dates: start: 20040427
  8. BIOFERMIN R [Concomitant]
     Indication: DIARRHOEA
     Dosage: 2 DF = 2 TABS
     Route: 048
     Dates: start: 20041112
  9. EVAMYL [Concomitant]
     Indication: INSOMNIA
     Dosage: TABS 16MAR07-29MAY08 2MG/DY:30MAY08-21JAN08 1MG/DY:23JAN10-ONG
     Route: 048
     Dates: start: 20070316

REACTIONS (1)
  - GOUT [None]
